FAERS Safety Report 23787696 (Version 1)
Quarter: 2024Q2

REPORT INFORMATION
  Report Type: Spontaneous
  Country: CN (occurrence: CN)
  Receive Date: 20240426
  Receipt Date: 20240426
  Transmission Date: 20240716
  Serious: Yes (Other)
  Sender: FDA-Public Use
  Company Number: CN-AstraZeneca-2024A095695

PATIENT

DRUGS (4)
  1. GOSERELIN [Suspect]
     Active Substance: GOSERELIN
     Indication: Prostate cancer
     Dosage: EVERY 84 DAYS (EVERY 3 MONTHS)
     Route: 058
     Dates: start: 202311, end: 20240227
  2. ZOLADEX [Suspect]
     Active Substance: GOSERELIN ACETATE
     Indication: Prostate cancer
     Dosage: UNK
     Route: 065
  3. DEGARELIX ACETATE [Suspect]
     Active Substance: DEGARELIX ACETATE
     Indication: Prostate cancer
     Dosage: 80 MILLIGRAM, EVERY 4 WEEKS, EVERY 28 DAYS
     Route: 058
     Dates: start: 20240222, end: 20240222
  4. DENOSUMAB [Concomitant]
     Active Substance: DENOSUMAB
     Indication: Prostate cancer
     Dosage: UNK
     Route: 065
     Dates: start: 202311

REACTIONS (4)
  - Neoplasm recurrence [Unknown]
  - Injection site panniculitis [Unknown]
  - Pyrexia [Unknown]
  - Injection site mass [Unknown]

NARRATIVE: CASE EVENT DATE: 20240301
